FAERS Safety Report 20864294 (Version 5)
Quarter: 2024Q1

REPORT INFORMATION
  Report Type: Spontaneous
  Country: US (occurrence: US)
  Receive Date: 20220523
  Receipt Date: 20240328
  Transmission Date: 20240409
  Serious: Yes (Hospitalization, Other)
  Sender: FDA-Public Use
  Company Number: US-SA-SAC20220519001120

PATIENT
  Age: 52 Year
  Sex: Female

DRUGS (4)
  1. DUPIXENT [Suspect]
     Active Substance: DUPILUMAB
     Indication: Asthma
     Dosage: 300 MG, QOW
     Route: 058
  2. GENTAMICIN [Concomitant]
     Active Substance: GENTAMICIN
     Dosage: NASAL RINSE
  3. MUPIROCIN [Concomitant]
     Active Substance: MUPIROCIN
     Dosage: UNK
  4. ZYRTEC [Concomitant]
     Active Substance: CETIRIZINE HYDROCHLORIDE
     Dosage: UNK

REACTIONS (16)
  - Sinusitis bacterial [Recovered/Resolved]
  - Clostridium difficile infection [Unknown]
  - Staphylococcal infection [Unknown]
  - Pseudomonas infection [Unknown]
  - Sinus pain [Unknown]
  - Paranasal sinus haemorrhage [Unknown]
  - Staphylococcus test positive [Unknown]
  - Pseudomonas test positive [Unknown]
  - Nasal discharge discolouration [Unknown]
  - Diarrhoea [Unknown]
  - Oral candidiasis [Unknown]
  - Dyspnoea [Unknown]
  - Sinus operation [Unknown]
  - Infectious mononucleosis [Unknown]
  - Pyrexia [Unknown]
  - Asthma [Unknown]

NARRATIVE: CASE EVENT DATE: 20220101
